FAERS Safety Report 14952356 (Version 3)
Quarter: 2018Q3

REPORT INFORMATION
  Report Type: Spontaneous
  Country: US (occurrence: US)
  Receive Date: 20180530
  Receipt Date: 20180718
  Transmission Date: 20181010
  Serious: No
  Sender: FDA-Public Use
  Company Number: US-PFIZER INC-2018214886

PATIENT
  Age: 55 Year
  Sex: Female
  Weight: 58.96 kg

DRUGS (5)
  1. DULOXETINE. [Concomitant]
     Active Substance: DULOXETINE
     Indication: DEPRESSION
  2. DETROL [Concomitant]
     Active Substance: TOLTERODINE TARTRATE
     Dosage: UNK
  3. LYRICA [Suspect]
     Active Substance: PREGABALIN
     Dosage: UNK
  4. DULOXETINE. [Concomitant]
     Active Substance: DULOXETINE
     Indication: ANXIETY
     Dosage: 90 MG, DAILY (60 MG IN MORNING AND 30 MG IN THE AFTERNOON)
  5. LYRICA [Suspect]
     Active Substance: PREGABALIN
     Indication: BRAIN INJURY
     Dosage: 200 MG, DAILY (200MG PILL A DAY)
     Dates: start: 2007

REACTIONS (13)
  - Intentional product use issue [Unknown]
  - Tremor [Unknown]
  - Pain [Unknown]
  - Pruritus [Unknown]
  - Hyperhidrosis [Unknown]
  - Insomnia [Unknown]
  - Depressed mood [Unknown]
  - Gastric disorder [Unknown]
  - Formication [Unknown]
  - Irritability [Unknown]
  - Headache [Unknown]
  - Head titubation [Unknown]
  - Product use in unapproved indication [Unknown]

NARRATIVE: CASE EVENT DATE: 20180522
